FAERS Safety Report 6443101-9 (Version None)
Quarter: 2009Q4

REPORT INFORMATION
  Report Type: 
  Country: None (occurrence: None)
  Receive Date: 20091117
  Receipt Date: 20091022
  Transmission Date: 20100525
  Serious: Yes (Disabling, Other)
  Sender: FDA-Public Use
  Company Number: BR-SANOFI-AVENTIS-200813132GDDC

PATIENT
  Age: 9 Year
  Sex: Female
  Weight: 26 kg

DRUGS (14)
  1. INSULIN GLARGINE [Suspect]
     Route: 058
     Dates: start: 20080320
  2. INSULIN GLARGINE [Suspect]
     Route: 058
  3. INSULIN GLARGINE [Suspect]
     Dosage: DOSE AS USED: UNK
     Route: 058
  4. INSULIN GLARGINE [Suspect]
     Route: 058
  5. INSULIN GLARGINE [Suspect]
     Route: 058
     Dates: start: 20090925
  6. INSULIN GLARGINE [Suspect]
     Route: 058
  7. INSULIN GLARGINE [Suspect]
     Dosage: DOSE AS USED: UNK
     Route: 058
  8. INSULIN GLARGINE [Suspect]
     Route: 058
  9. INSULIN GLARGINE [Suspect]
     Route: 058
  10. INSULIN GLARGINE [Suspect]
     Route: 058
     Dates: start: 20070801
  11. INSULIN GLARGINE [Suspect]
     Route: 058
     Dates: start: 20080421, end: 20080421
  12. INSULIN LISPRO [Concomitant]
     Dosage: DOSE AS USED: ACCORDING TO CARBOHYDRATE COUNTER
     Route: 058
     Dates: start: 20070801
  13. HUMULIN N [Concomitant]
     Route: 058
     Dates: start: 20070801
  14. MULTIVITAMINS, COMBINATIONS [Concomitant]

REACTIONS (9)
  - ARTHRALGIA [None]
  - BLOOD GLUCOSE FLUCTUATION [None]
  - CONVULSION [None]
  - HYPERGLYCAEMIA [None]
  - HYPOGLYCAEMIA [None]
  - LIGAMENT CALCIFICATION [None]
  - MEMORY IMPAIRMENT [None]
  - MUSCULOSKELETAL STIFFNESS [None]
  - SOMNOLENCE [None]
